FAERS Safety Report 5698352-8 (Version None)
Quarter: 2008Q2

REPORT INFORMATION
  Report Type: 
  Country: None (occurrence: None)
  Receive Date: 20080408
  Receipt Date: 20080331
  Transmission Date: 20081010
  Serious: Yes (Other)
  Sender: FDA-Public Use
  Company Number: FR-PFIZER INC-2008029319

PATIENT
  Age: 50 Year
  Sex: Female

DRUGS (1)
  1. ZITHROMAX [Suspect]
     Indication: BRONCHITIS
     Route: 048
     Dates: start: 20080325, end: 20080329

REACTIONS (7)
  - ANXIETY [None]
  - FALL [None]
  - FATIGUE [None]
  - NAUSEA [None]
  - TINNITUS [None]
  - VAGINAL INFECTION [None]
  - VERTIGO [None]
